FAERS Safety Report 21356047 (Version 1)
Quarter: 2022Q3

REPORT INFORMATION
  Report Type: Spontaneous
  Country: US (occurrence: US)
  Receive Date: 20220920
  Receipt Date: 20220920
  Transmission Date: 20221027
  Serious: Yes (Other)
  Sender: FDA-Public Use
  Company Number: US-TAKEDA-2022TUS064580

PATIENT
  Sex: Female

DRUGS (4)
  1. ADDERALL XR [Suspect]
     Active Substance: AMPHETAMINE ASPARTATE\AMPHETAMINE SULFATE\DEXTROAMPHETAMINE SACCHARATE\DEXTROAMPHETAMINE SULFATE
     Indication: Product used for unknown indication
     Route: 065
  2. KESIMPTA [Suspect]
     Active Substance: OFATUMUMAB
     Indication: Multiple sclerosis
     Dosage: 20 MILLIGRAM, MONTHLY
     Route: 058
  3. ADVIL COLD AND SINUS [Concomitant]
     Active Substance: IBUPROFEN\PSEUDOEPHEDRINE HYDROCHLORIDE
  4. IBUPROFEN [Concomitant]
     Active Substance: IBUPROFEN

REACTIONS (3)
  - Influenza like illness [Unknown]
  - Injection site pain [Unknown]
  - Injection site bruising [Unknown]
